FAERS Safety Report 16872617 (Version 1)
Quarter: 2019Q4

REPORT INFORMATION
  Report Type: Spontaneous
  Country: US (occurrence: US)
  Receive Date: 20191001
  Receipt Date: 20191001
  Transmission Date: 20200122
  Serious: No
  Sender: FDA-Public Use
  Company Number: US-SPARK THERAPEUTICS, INC.-US-SPK-19-00022

PATIENT
  Sex: Male

DRUGS (4)
  1. LUXTURNA [Suspect]
     Active Substance: VORETIGENE NEPARVOVEC-RZYL
     Dosage: IN THE RIGHT EYE
     Route: 031
     Dates: start: 20190701, end: 20190701
  2. LUXTURNA [Suspect]
     Active Substance: VORETIGENE NEPARVOVEC-RZYL
     Dosage: IN THE RIGHT EYE
     Dates: start: 20190701, end: 20190701
  3. LUXTURNA [Suspect]
     Active Substance: VORETIGENE NEPARVOVEC-RZYL
     Indication: RETINAL DYSTROPHY
     Dosage: IN THE LEFT EYE
     Route: 031
     Dates: start: 20190617, end: 20190617
  4. LUXTURNA [Suspect]
     Active Substance: VORETIGENE NEPARVOVEC-RZYL
     Indication: RETINAL DYSTROPHY
     Dosage: IN THE LEFT EYE
     Dates: start: 20190617, end: 20190617

REACTIONS (7)
  - Eyelid injury [Unknown]
  - Eye pain [Recovered/Resolved]
  - Lacrimation increased [Recovering/Resolving]
  - Vitreous floaters [Not Recovered/Not Resolved]
  - Strabismus [Unknown]
  - Vision blurred [Not Recovered/Not Resolved]
  - Photopsia [Unknown]

NARRATIVE: CASE EVENT DATE: 20190617
